FAERS Safety Report 8975067 (Version 2)
Quarter: 2014Q2

REPORT INFORMATION
  Report Type: Report from Study
  Country: MX (occurrence: MX)
  Receive Date: 20121219
  Receipt Date: 20130805
  Transmission Date: 20141212
  Serious: Yes (Other)
  Sender: FDA-Public Use
  Company Number: PHHY2012MX117278

PATIENT
  Age: 78 Year
  Sex: Male

DRUGS (1)
  1. CO-DIOVAN [Suspect]
     Indication: HYPERTENSION
     Dosage: 1 DF (160/25MG) DAILY
     Route: 048
     Dates: start: 20100331

REACTIONS (1)
  - Infarction [Not Recovered/Not Resolved]
